FAERS Safety Report 22292872 (Version 1)
Quarter: 2023Q2

REPORT INFORMATION
  Report Type: Spontaneous
  Country: JP (occurrence: JP)
  Receive Date: 20230508
  Receipt Date: 20230508
  Transmission Date: 20230722
  Serious: Yes (Death, Hospitalization, Other)
  Sender: FDA-Public Use
  Company Number: JP-WOCKHARDT LIMITED-2023WLD000051

PATIENT
  Age: 76 Year
  Sex: Male
  Weight: 72 kg

DRUGS (1)
  1. CEFTRIAXONE [Suspect]
     Active Substance: CEFTRIAXONE
     Indication: Psoas abscess
     Dosage: 2 GRAM, BID
     Route: 042

REACTIONS (3)
  - Haemorrhagic cholecystitis [Fatal]
  - Pseudocholelithiasis [Unknown]
  - Product use in unapproved indication [Unknown]
